FAERS Safety Report 6930118-0 (Version None)
Quarter: 2010Q3

REPORT INFORMATION
  Report Type: 
  Country: None (occurrence: None)
  Receive Date: 20100818
  Receipt Date: 20090806
  Transmission Date: 20110219
  Serious: No
  Sender: FDA-Public Use
  Company Number: US-ASTRAZENECA-2005UW15330

PATIENT
  Age: 58 Year
  Sex: Female
  Weight: 83.5 kg

DRUGS (5)
  1. IRESSA [Suspect]
     Indication: LUNG NEOPLASM MALIGNANT
     Route: 048
     Dates: start: 20020101
  2. VITAMINS [Concomitant]
  3. PAIN PILL [Concomitant]
  4. MEGESTROL [Concomitant]
  5. NORVASC [Concomitant]

REACTIONS (9)
  - ALOPECIA [None]
  - COUGH [None]
  - DIARRHOEA [None]
  - DIZZINESS [None]
  - DYSPNOEA [None]
  - HAIR GROWTH ABNORMAL [None]
  - PILOERECTION [None]
  - PRODUCTIVE COUGH [None]
  - RASH [None]
